FAERS Safety Report 12832867 (Version 2)
Quarter: 2016Q4

REPORT INFORMATION
  Report Type: Spontaneous
  Country: ES (occurrence: ES)
  Receive Date: 20161010
  Receipt Date: 20161017
  Transmission Date: 20170207
  Serious: Yes (Other)
  Sender: FDA-Public Use
  Company Number: ES-JNJFOC-20160928823

PATIENT
  Age: 6 Year
  Sex: Male

DRUGS (2)
  1. INFLIXIMAB, RECOMBINANT [Suspect]
     Active Substance: INFLIXIMAB
     Indication: CROHN^S DISEASE
     Route: 042
  2. TACROLIMUS. [Suspect]
     Active Substance: TACROLIMUS
     Indication: CROHN^S DISEASE
     Dosage: ADJUSTED FOR 5-10 NG/ML BLOOD LEVELS
     Route: 065

REACTIONS (4)
  - Diarrhoea haemorrhagic [Unknown]
  - Pyrexia [Unknown]
  - Abdominal pain [Unknown]
  - Genital injury [Recovering/Resolving]
